FAERS Safety Report 4286499-2 (Version None)
Quarter: 2004Q1

REPORT INFORMATION
  Report Type: 
  Country: None (occurrence: None)
  Receive Date: 20040204
  Receipt Date: 20040123
  Transmission Date: 20041129
  Serious: Yes (Other)
  Sender: FDA-Public Use
  Company Number: 2004196747US

PATIENT
  Age: 75 Year
  Sex: Female

DRUGS (3)
  1. MYCOBUTIN [Suspect]
     Indication: MYCOBACTERIUM AVIUM COMPLEX INFECTION
     Dosage: 150 MG, BID, UNK
     Dates: start: 20020101, end: 20020201
  2. AZITHROMYCIN [Suspect]
     Indication: MYCOBACTERIUM AVIUM COMPLEX INFECTION
     Dosage: 500 MG, DAILY, UNK
     Dates: start: 20020101
  3. ETHAMBUTOL HCL [Concomitant]

REACTIONS (2)
  - MALAISE [None]
  - STEVENS-JOHNSON SYNDROME [None]
